FAERS Safety Report 8861799 (Version 1)
Quarter: 2012Q4

REPORT INFORMATION
  Report Type: Spontaneous
  Country: GB (occurrence: None)
  Receive Date: 20121023
  Receipt Date: 20121023
  Transmission Date: 20130627
  Serious: Yes (Disabling)
  Sender: FDA-Public Use
  Company Number: AUR-APL-2012-04463

PATIENT
  Age: 31 Year
  Sex: Male
  Weight: 73.02 kg

DRUGS (5)
  1. QUETIAPINE [Suspect]
     Indication: CHRONIC DEPRESSION
     Dosage: 300mg, slowly tapering down to 25mg over 6 weeks then cease, Oral
     Route: 048
     Dates: start: 20110606, end: 20120827
  2. GARLIC EXTRACT (ALLIUM SATIVUM) [Concomitant]
  3. MILK THISTLE SEED EXTRACT (SILYBUM MARIANUM) [Concomitant]
  4. PASSIFLORA (PASSIFLORA INCARNATA EXTRACT) [Concomitant]
  5. VALERIAN ROOT DRY EXTRACT (VALERIANA OFFICINALS) [Concomitant]

REACTIONS (8)
  - Discomfort [None]
  - Pollakiuria [None]
  - Insomnia [None]
  - Pruritus [None]
  - Diarrhoea [None]
  - Rhinorrhoea [None]
  - Lacrimation increased [None]
  - Withdrawal syndrome [None]
